FAERS Safety Report 4277878-8 (Version None)
Quarter: 2004Q1

REPORT INFORMATION
  Report Type: 
  Country: None (occurrence: None)
  Receive Date: 20040121
  Receipt Date: 20030220
  Transmission Date: 20041129
  Serious: Yes (Death, Other)
  Sender: FDA-Public Use
  Company Number: 2003-02-1112

PATIENT
  Age: 43 Year
  Sex: Male

DRUGS (5)
  1. SUBUTEX [Suspect]
     Dosage: SUBLINGUAL
     Route: 060
     Dates: end: 20021105
  2. VALIUM [Suspect]
     Dosage: ORAL
     Route: 048
     Dates: end: 20021105
  3. TRANXENE [Suspect]
     Dosage: ORAL
     Route: 048
     Dates: end: 20021105
  4. ALCOHOL [Concomitant]
  5. CANNABIS [Concomitant]

REACTIONS (6)
  - ASPHYXIA [None]
  - CARDIAC DEATH [None]
  - CORONARY ARTERY STENOSIS [None]
  - DRUG DEPENDENCE [None]
  - DRUG INTERACTION [None]
  - DRUG TOXICITY [None]
